FAERS Safety Report 11881929 (Version 2)
Quarter: 2016Q1

REPORT INFORMATION
  Report Type: Spontaneous
  Country: CZ (occurrence: CZ)
  Receive Date: 20151231
  Receipt Date: 20160114
  Transmission Date: 20160526
  Serious: Yes (Other)
  Sender: FDA-Public Use
  Company Number: CZ-ACTAVIS-2015-28679

PATIENT
  Age: 45 Year
  Sex: Male

DRUGS (10)
  1. TRAMADOL. [Concomitant]
     Active Substance: TRAMADOL
     Indication: CANCER PAIN
     Dosage: UNK
     Route: 065
  2. NIMESULIDE (UNKNOWN) [Suspect]
     Active Substance: NIMESULIDE
     Indication: CANCER PAIN
     Dosage: UNK
     Route: 065
  3. SUNITINIB [Suspect]
     Active Substance: SUNITINIB
     Dosage: 50 MG, DAILY (MONOTHERAPY)
     Route: 048
     Dates: start: 201301, end: 201304
  4. IBUPROFEN. [Concomitant]
     Active Substance: IBUPROFEN
     Indication: CANCER PAIN
     Dosage: UNK
     Route: 065
  5. OXYCODONE [Concomitant]
     Active Substance: OXYCODONE
     Indication: CANCER PAIN
     Dosage: UNK
     Route: 065
  6. FENTANYL. [Concomitant]
     Active Substance: FENTANYL
     Indication: CANCER PAIN
     Dosage: 125 MG, UNKNOWN
     Route: 062
  7. SUNITINIB [Suspect]
     Active Substance: SUNITINIB
     Indication: RENAL CANCER METASTATIC
     Dosage: 25 MG, DAILY
     Route: 048
  8. SUNITINIB [Suspect]
     Active Substance: SUNITINIB
     Dosage: 50 MG, DAILY (4 WEEKS USE WITH 2 WEEKS BREAK, IN COMBINATION WITH DENDRITIC CELL VACCINE)
     Route: 048
     Dates: start: 201209, end: 201301
  9. ZOLEDRONIC ACID (UNKNOWN) [Suspect]
     Active Substance: ZOLEDRONIC ACID
     Indication: METASTASES TO BONE
     Dosage: UNK, ONCE A MONTH
     Route: 042
     Dates: start: 201209, end: 201402
  10. SUNITINIB [Suspect]
     Active Substance: SUNITINIB
     Dosage: 37.5 MG, DAILY
     Route: 048
     Dates: start: 201304

REACTIONS (3)
  - Gastritis [Unknown]
  - Renal impairment [Recovered/Resolved]
  - Osteonecrosis of jaw [Recovered/Resolved]
